FAERS Safety Report 18453012 (Version 2)
Quarter: 2020Q4

REPORT INFORMATION
  Report Type: Report from Study
  Country: MX (occurrence: MX)
  Receive Date: 20201102
  Receipt Date: 20201203
  Transmission Date: 20210114
  Serious: No
  Sender: FDA-Public Use
  Company Number: MX-UCBSA-2020043615

PATIENT
  Age: 25 Year
  Sex: Female
  Weight: 65 kg

DRUGS (1)
  1. CERTOLIZUMAB PEGOL JIA [Suspect]
     Active Substance: CERTOLIZUMAB PEGOL
     Indication: JUVENILE IDIOPATHIC ARTHRITIS
     Dosage: 100 MILLIGRAM, EV 2 WEEKS(QOW)
     Route: 058
     Dates: start: 20121226

REACTIONS (1)
  - Latent tuberculosis [Recovered/Resolved]

NARRATIVE: CASE EVENT DATE: 20201026
